FAERS Safety Report 5030611-4 (Version None)
Quarter: 2006Q2

REPORT INFORMATION
  Report Type: 
  Country: None (occurrence: None)
  Receive Date: 20060615
  Receipt Date: 20060602
  Transmission Date: 20061013
  Serious: Yes (Other)
  Sender: FDA-Public Use
  Company Number: 2006072760

PATIENT
  Age: 73 Year
  Sex: Female
  Weight: 72.5755 kg

DRUGS (3)
  1. CELEBREX [Suspect]
     Indication: ARTHRALGIA
     Dosage: 200 MG (200 MG, 1 IN 1 AS NECESSARY), ORAL
     Route: 048
  2. ATENOLOL [Concomitant]
  3. XANAX [Concomitant]

REACTIONS (5)
  - ARTHRITIS [None]
  - DEPRESSED MOOD [None]
  - IMPLANT SITE INFLAMMATION [None]
  - JOINT EFFUSION [None]
  - KNEE ARTHROPLASTY [None]
